FAERS Safety Report 8950462 (Version 1)
Quarter: 2012Q4

REPORT INFORMATION
  Report Type: Spontaneous
  Country: US (occurrence: None)
  Receive Date: 20121204
  Receipt Date: 20121204
  Transmission Date: 20130627
  Serious: Yes (Other)
  Sender: FDA-Public Use
  Company Number: None

PATIENT
  Age: 11 Year
  Sex: Male
  Weight: 48.54 kg

DRUGS (1)
  1. AMPHETAMINE (+) DEXTROAMPHETAMINE [Suspect]
     Indication: ADD
     Dosage: 25 MG 1 PO QAM ORAL
     Route: 048

REACTIONS (3)
  - Headache [None]
  - Dizziness [None]
  - Vomiting [None]
